FAERS Safety Report 8844349 (Version 2)
Quarter: 2012Q4

REPORT INFORMATION
  Report Type: 
  Country: US (occurrence: US)
  Receive Date: 20121017
  Receipt Date: 20121107
  Transmission Date: 20130627
  Serious: Yes (Death)
  Sender: FDA-Public Use
  Company Number: US-JNJFOC-20121009041

PATIENT
  Age: 54 Year
  Sex: Female
  Weight: 141.98 kg

DRUGS (2)
  1. XARELTO [Suspect]
     Indication: THROMBOSIS PROPHYLAXIS
     Route: 048
     Dates: start: 20121002
  2. XARELTO [Suspect]
     Indication: SURGERY
     Route: 048
     Dates: start: 20121002

REACTIONS (1)
  - Cardiac arrest [Fatal]
